FAERS Safety Report 13247697 (Version 1)
Quarter: 2017Q1

REPORT INFORMATION
  Report Type: Report from Study
  Country: ES (occurrence: ES)
  Receive Date: 20170217
  Receipt Date: 20170217
  Transmission Date: 20170428
  Serious: Yes (Other)
  Sender: FDA-Public Use
  Company Number: ES-MYLANLABS-2017M1008672

PATIENT

DRUGS (2)
  1. GEMCITABINE [Suspect]
     Active Substance: GEMCITABINE\GEMCITABINE HYDROCHLORIDE
     Indication: ADENOCARCINOMA PANCREAS
     Dosage: 1000MG/ME2 ON DAYS 1, 8 AND 15 OF EACH CYCLE
     Route: 042
     Dates: start: 201311
  2. PACLITAXEL. [Suspect]
     Active Substance: PACLITAXEL
     Indication: ADENOCARCINOMA PANCREAS
     Dosage: 125MG/ME2 ON DAYS 1, 8 AND 15 OF EACH CYCLE
     Route: 042
     Dates: start: 201311

REACTIONS (5)
  - Nausea [Unknown]
  - Neutropenia [Unknown]
  - Asthenia [Unknown]
  - Vomiting [Unknown]
  - Arthralgia [Unknown]
